FAERS Safety Report 5095776-7 (Version None)
Quarter: 2006Q3

REPORT INFORMATION
  Report Type: 
  Country: None (occurrence: None)
  Receive Date: 20060905
  Receipt Date: 20060828
  Transmission Date: 20061208
  Serious: Yes (Hospitalization, Other)
  Sender: FDA-Public Use
  Company Number: SE-JNJFOC-20060600734

PATIENT
  Sex: Female

DRUGS (13)
  1. REMICADE [Suspect]
     Route: 042
  2. REMICADE [Suspect]
     Dosage: 10TH INFUSION
     Route: 042
  3. REMICADE [Suspect]
     Indication: CROHN'S DISEASE
     Route: 042
  4. AZATHIOPRINE [Concomitant]
  5. PANTOPRAZOLE SODIUM [Concomitant]
  6. BEVIPLEX [Concomitant]
  7. BETOLVEX [Concomitant]
  8. DUROFERON [Concomitant]
  9. EMGESAN [Concomitant]
  10. IMOVANE [Concomitant]
  11. CITODON [Concomitant]
  12. XYLOPROCT [Concomitant]
  13. METADON [Concomitant]

REACTIONS (1)
  - DEAFNESS NEUROSENSORY [None]
